FAERS Safety Report 7646431-8 (Version None)
Quarter: 2011Q3

REPORT INFORMATION
  Report Type: 
  Country: None (occurrence: None)
  Receive Date: 20110801
  Receipt Date: 20110725
  Transmission Date: 20111222
  Serious: Yes (Death, Other)
  Sender: FDA-Public Use
  Company Number: JP-CELGENEUS-087-CCAZA-11073209

PATIENT
  Sex: Male

DRUGS (18)
  1. LASIX [Concomitant]
     Dosage: 20 MILLIGRAM
     Route: 048
     Dates: start: 20110412
  2. BUFFERIN [Concomitant]
     Dosage: 81 MILLIGRAM
     Route: 048
  3. ZOSYN [Concomitant]
     Dosage: 13.5 GRAM
     Route: 041
     Dates: start: 20110508, end: 20110520
  4. FLUCONAZOLE [Concomitant]
     Dosage: 800 MILLIGRAM
     Route: 041
     Dates: start: 20110507, end: 20110508
  5. FLUCONAZOLE [Concomitant]
     Dosage: 400 MILLIGRAM
     Route: 041
     Dates: start: 20110509, end: 20110511
  6. CEFOPERAZONE SODIUM [Concomitant]
     Dosage: 2 GRAM
     Route: 041
     Dates: start: 20110607, end: 20110614
  7. GRAN [Concomitant]
     Dosage: 75 MICROGRAM
     Route: 041
     Dates: start: 20110429, end: 20110513
  8. KYTRIL [Concomitant]
     Dosage: 3 MILLIGRAM
     Route: 041
     Dates: start: 20110412, end: 20110418
  9. VIDAZA [Suspect]
     Dosage: 75 MILLIGRAM/SQ. METER
     Route: 041
     Dates: start: 20110412, end: 20110418
  10. SOLU-MEDROL [Concomitant]
     Dosage: 1000 MILLIGRAM
     Route: 041
     Dates: start: 20110514, end: 20110516
  11. SOLU-MEDROL [Concomitant]
     Dosage: 1000 MILLIGRAM
     Route: 041
     Dates: start: 20110606, end: 20110608
  12. HUSTAZOL [Concomitant]
     Dosage: 60 MILLIGRAM
     Route: 048
     Dates: start: 20110412
  13. MINOCYCLINE HCL [Concomitant]
     Dosage: 200 MILLIGRAM
     Route: 041
     Dates: start: 20110527, end: 20110531
  14. TIENAM [Concomitant]
     Dosage: 2 GRAM
     Route: 041
     Dates: start: 20110601, end: 20110606
  15. FAMOTIDINE [Concomitant]
     Dosage: 20 MILLIGRAM
     Route: 048
     Dates: start: 20110412
  16. NITRODERM [Concomitant]
     Dosage: 25 MILLIGRAM
     Route: 065
     Dates: start: 20110412
  17. SENNOSIDE [Concomitant]
     Dosage: 2 DF
     Route: 065
     Dates: start: 20110412
  18. MAXIPIME [Concomitant]
     Dosage: 2 GRAM
     Route: 041
     Dates: start: 20110429, end: 20110507

REACTIONS (2)
  - INTERSTITIAL LUNG DISEASE [None]
  - PLATELET COUNT DECREASED [None]
